FAERS Safety Report 7627866-6 (Version None)
Quarter: 2011Q3

REPORT INFORMATION
  Report Type: 
  Country: None (occurrence: None)
  Receive Date: 20110721
  Receipt Date: 20110715
  Transmission Date: 20111222
  Serious: Yes (Other)
  Sender: FDA-Public Use
  Company Number: CA-MERCK-1010USA02831

PATIENT
  Age: 56 Year
  Sex: Male

DRUGS (6)
  1. BRIMONIDINE TARTRATE [Concomitant]
     Route: 065
  2. ATORVASTATIN CALCIUM [Concomitant]
     Route: 065
  3. LAMOTRIGINE [Concomitant]
     Indication: EPILEPSY
     Route: 065
  4. COZAAR [Suspect]
     Route: 048
     Dates: start: 20100917
  5. CLOBAZAM [Concomitant]
     Indication: EPILEPSY
     Route: 065
  6. NITROFURANTOIN [Concomitant]
     Route: 065

REACTIONS (1)
  - CONVULSION [None]
